FAERS Safety Report 10682138 (Version 2)
Quarter: 2015Q1

REPORT INFORMATION
  Report Type: Spontaneous
  Country: FR (occurrence: None)
  Receive Date: 20141224
  Receipt Date: 20150203
  Transmission Date: 20150720
  Serious: Yes (Hospitalization)
  Sender: FDA-Public Use
  Company Number: FR-20140418

PATIENT
  Age: 65 Year
  Sex: Female

DRUGS (1)
  1. DOTAREM [Suspect]
     Active Substance: GADOTERATE MEGLUMINE
     Indication: NUCLEAR MAGNETIC RESONANCE IMAGING BREAST
     Dosage: 1 IN 1 D
     Route: 042
     Dates: start: 20141211, end: 20141211

REACTIONS (3)
  - Dyspnoea [None]
  - Chest pain [None]
  - Pharyngeal oedema [None]

NARRATIVE: CASE EVENT DATE: 20141211
